FAERS Safety Report 25485427 (Version 1)
Quarter: 2025Q2

REPORT INFORMATION
  Report Type: Report from Study
  Country: SD (occurrence: SD)
  Receive Date: 20250626
  Receipt Date: 20250626
  Transmission Date: 20250716
  Serious: Yes (Death)
  Sender: PFIZER
  Company Number: SD-PFIZER INC-PV202500075450

PATIENT
  Age: 44 Year
  Sex: Male

DRUGS (1)
  1. SUTENT [Suspect]
     Active Substance: SUNITINIB MALATE
     Indication: Renal cell carcinoma

REACTIONS (1)
  - Death [Fatal]

NARRATIVE: CASE EVENT DATE: 20250124
